FAERS Safety Report 5231526-9 (Version None)
Quarter: 2007Q1

REPORT INFORMATION
  Report Type: 
  Country: None (occurrence: None)
  Receive Date: 20061201
  Receipt Date: 20060914
  Transmission Date: 20070707
  Serious: No
  Sender: FDA-Public Use
  Company Number: 2006PV021252

PATIENT
  Age: 65 Year
  Sex: Female
  Weight: 79.3795 kg

DRUGS (7)
  1. BYETTA [Suspect]
     Indication: DIABETES MELLITUS NON-INSULIN-DEPENDENT
     Dosage: 5 MCG;QD;SC
     Route: 058
     Dates: start: 20060501, end: 20060914
  2. EVISTA [Concomitant]
  3. ASPIRIN [Concomitant]
  4. B-50 COMPLEX VITAMINS [Concomitant]
  5. CALCIUM CITRATE-D [Concomitant]
  6. STOOL SOFTENER [Concomitant]
  7. HIGH POTENCY MULTI VITAMIN [Concomitant]

REACTIONS (8)
  - ANXIETY [None]
  - DIARRHOEA [None]
  - DIZZINESS [None]
  - HEMIPARESIS [None]
  - HYPERTENSION [None]
  - MUSCULOSKELETAL DISCOMFORT [None]
  - NAUSEA [None]
  - VOMITING PROJECTILE [None]
